FAERS Safety Report 6532007-2 (Version None)
Quarter: 2010Q1

REPORT INFORMATION
  Report Type: 
  Country: None (occurrence: None)
  Receive Date: 20100107
  Receipt Date: 20100107
  Transmission Date: 20100710
  Serious: No
  Sender: FDA-Public Use
  Company Number: None

PATIENT
  Age: 68 Year
  Sex: Male
  Weight: 106.5953 kg

DRUGS (1)
  1. CHANTIX [Suspect]
     Indication: SMOKING CESSATION THERAPY
     Dates: start: 20050601, end: 20050707

REACTIONS (3)
  - MIDDLE INSOMNIA [None]
  - POOR QUALITY SLEEP [None]
  - SOMNOLENCE [None]
